FAERS Safety Report 9413973 (Version 1)
Quarter: 2013Q3

REPORT INFORMATION
  Report Type: Spontaneous
  Country: US (occurrence: US)
  Receive Date: 20130723
  Receipt Date: 20130723
  Transmission Date: 20140515
  Serious: Yes (Other)
  Sender: FDA-Public Use
  Company Number: US-PFIZER INC-2013213181

PATIENT
  Age: 52 Year
  Sex: Female
  Weight: 108 kg

DRUGS (5)
  1. NEURONTIN [Suspect]
     Indication: NEUROPATHY PERIPHERAL
     Dosage: 600 MG, 3X/DAY
  2. NEURONTIN [Suspect]
     Dosage: 300 MG, 3X/DAY
  3. LYRICA [Suspect]
     Indication: NEUROPATHY PERIPHERAL
     Dosage: 145 MG, 3X/DAY
  4. ELAVIL [Suspect]
     Indication: NEUROPATHY PERIPHERAL
     Dosage: 20 MG, 1X/DAY
  5. PRAVASTATIN [Concomitant]
     Indication: BLOOD CHOLESTEROL ABNORMAL
     Dosage: 10 MG, UNK

REACTIONS (3)
  - Off label use [Unknown]
  - Convulsion [Unknown]
  - Pain in extremity [Not Recovered/Not Resolved]
